FAERS Safety Report 10969674 (Version 2)
Quarter: 2015Q2

REPORT INFORMATION
  Report Type: Report from Study
  Country: CA (occurrence: CA)
  Receive Date: 20150331
  Receipt Date: 20150423
  Transmission Date: 20150821
  Serious: Yes (Other)
  Sender: FDA-Public Use
  Company Number: CA-JNJFOC-20150313667

PATIENT
  Age: 47 Year
  Sex: Female
  Weight: 87.1 kg

DRUGS (23)
  1. HYDROXYCHLOROQUINE [Concomitant]
     Active Substance: HYDROXYCHLOROQUINE
     Route: 048
     Dates: start: 20141127
  2. ACETAMINOPHEN. [Concomitant]
     Active Substance: ACETAMINOPHEN
     Route: 065
     Dates: start: 20150129
  3. PREDNISONE. [Concomitant]
     Active Substance: PREDNISONE
     Dosage: USING 50 MG AND 5 MG DAILY FOR 14 DAYS, DECREASE BY 10 MG EVERY 14 DAYS TO 30 MG DAILY FOR 30 DAYS.
     Route: 048
     Dates: start: 20141128
  4. COLCHICINE. [Concomitant]
     Active Substance: COLCHICINE
     Route: 048
     Dates: start: 20141127
  5. PREMARIN [Concomitant]
     Active Substance: ESTROGENS, CONJUGATED
     Route: 048
     Dates: start: 20131112
  6. LEVOFLOXACIN. [Concomitant]
     Active Substance: LEVOFLOXACIN
     Route: 065
     Dates: start: 20150102
  7. REMICADE [Suspect]
     Active Substance: INFLIXIMAB
     Indication: BEHCET^S SYNDROME
     Route: 042
     Dates: start: 20150204
  8. REMICADE [Suspect]
     Active Substance: INFLIXIMAB
     Indication: BEHCET^S SYNDROME
     Route: 042
     Dates: start: 20150218
  9. CYMBALTA [Concomitant]
     Active Substance: DULOXETINE HYDROCHLORIDE
     Route: 048
     Dates: start: 20141127
  10. EPIPEN [Concomitant]
     Active Substance: EPINEPHRINE
     Route: 048
     Dates: start: 20141127
  11. NEORAL [Concomitant]
     Active Substance: CYCLOSPORINE
     Route: 048
     Dates: start: 20141017
  12. PREDNISONE. [Concomitant]
     Active Substance: PREDNISONE
     Dosage: STARTING AFTER 50 MG TAKE 6 TABS FOR 7 DAYS, THEEN REDUCE 4 TABSDAILY FOR 30 DAYS.
     Route: 048
     Dates: start: 20141128
  13. PREDNISONE. [Concomitant]
     Active Substance: PREDNISONE
     Dosage: USING 50 MG AND 5 MG DAILY FOR 14 DAYS, DECREASE BY 10 MG EVERY 14 DAYS TO 30 MG DAILY FOR 30 DAYS.
     Route: 048
     Dates: start: 20141223
  14. OXYCODONE HYDROCHLORIDE AND ACETAMINOPHEN [Concomitant]
     Active Substance: ACETAMINOPHEN\OXYCODONE HYDROCHLORIDE
     Dosage: 5MG/325MG TAKE 1 TAB ORALLY EVERY 6 HOURS AS NEEDED.
     Route: 048
     Dates: start: 20141127
  15. APO-QUININE [Concomitant]
     Active Substance: QUININE
     Route: 048
     Dates: start: 20141127
  16. WELLBUTRIN [Concomitant]
     Active Substance: BUPROPION HYDROCHLORIDE
     Route: 048
     Dates: start: 20141127
  17. NEORAL [Concomitant]
     Active Substance: CYCLOSPORINE
     Route: 048
     Dates: start: 20141017
  18. METHOTREXATE [Concomitant]
     Active Substance: METHOTREXATE
     Dosage: 6 TABS A WEEK IN SPLI DOSE (3 TANS TWICE A DAY) FOR 30 DAYS AND INCREASE TO 8 TABS ONCE WEEKLY.
     Route: 048
     Dates: start: 20140426
  19. DIPHENHYDRAMINE [Concomitant]
     Active Substance: DIPHENHYDRAMINE
     Route: 065
     Dates: start: 20150129
  20. MORPHINE SULFATE. [Concomitant]
     Active Substance: MORPHINE SULFATE
     Dosage: TAKE 1 OR 2 TABS TWICE A DAY
     Route: 048
     Dates: start: 20141127
  21. PREGABALIN. [Concomitant]
     Active Substance: PREGABALIN
     Indication: NERVE INJURY
     Route: 065
     Dates: start: 20141127
  22. LYRICA [Concomitant]
     Active Substance: PREGABALIN
     Route: 048
     Dates: start: 20131112
  23. CORTEF [Concomitant]
     Active Substance: HYDROCORTISONE
     Route: 065
     Dates: start: 20150129

REACTIONS (2)
  - B-cell lymphoma [Unknown]
  - Product use issue [Unknown]

NARRATIVE: CASE EVENT DATE: 20150311
